FAERS Safety Report 13292669 (Version 2)
Quarter: 2017Q1

REPORT INFORMATION
  Report Type: Spontaneous
  Country: CN (occurrence: CN)
  Receive Date: 20170303
  Receipt Date: 20170307
  Transmission Date: 20170428
  Serious: Yes (Other)
  Sender: FDA-Public Use
  Company Number: CN-PFIZER INC-2017093239

PATIENT
  Age: 20 Year
  Sex: Male
  Weight: 78 kg

DRUGS (3)
  1. ENDOXAN [Suspect]
     Active Substance: CYCLOPHOSPHAMIDE
     Dosage: 1.6 G, 1X/DAY
     Route: 041
     Dates: start: 20161209, end: 20161209
  2. VINCRISTINE SULFATE. [Concomitant]
     Active Substance: VINCRISTINE SULFATE
     Indication: CHEMOTHERAPY
     Dosage: 2 MG, 1X/DAY
     Route: 041
     Dates: start: 20161209, end: 20161209
  3. PHARMORUBICIN [Suspect]
     Active Substance: EPIRUBICIN
     Dosage: 70 MG, 1X/DAY
     Route: 041
     Dates: start: 20161210, end: 20161211

REACTIONS (1)
  - Liver injury [Recovering/Resolving]

NARRATIVE: CASE EVENT DATE: 20161214
